FAERS Safety Report 11473162 (Version 1)
Quarter: 2015Q3

REPORT INFORMATION
  Report Type: Spontaneous
  Country: US (occurrence: None)
  Receive Date: 20150904
  Receipt Date: 20150904
  Transmission Date: 20151125
  Serious: Yes (Other)
  Sender: FDA-Public Use
  Company Number: PL15-0017863

PATIENT
  Sex: Male

DRUGS (1)
  1. DRAMAMINE FOR KIDS [Suspect]
     Active Substance: DIMENHYDRINATE
     Route: 048

REACTIONS (1)
  - Seizure [None]

NARRATIVE: CASE EVENT DATE: 20150812
